FAERS Safety Report 14903541 (Version 2)
Quarter: 2019Q2

REPORT INFORMATION
  Report Type: Spontaneous
  Country: JP (occurrence: JP)
  Receive Date: 20180516
  Receipt Date: 20190527
  Transmission Date: 20190711
  Serious: Yes (Hospitalization)
  Sender: FDA-Public Use
  Company Number: PHJP2018JP010898

PATIENT
  Age: 64 Year
  Sex: Male
  Weight: 73.5 kg

DRUGS (12)
  1. NEORAL [Suspect]
     Active Substance: CYCLOSPORINE
     Indication: IMMUNOSUPPRESSION
  2. PARIET [Concomitant]
     Active Substance: RABEPRAZOLE SODIUM
     Indication: GASTRITIS
     Dosage: 10 MG, QD
     Route: 048
     Dates: start: 20110819
  3. CELLCEPT [Suspect]
     Active Substance: MYCOPHENOLATE MOFETIL\MYCOPHENOLATE MOFETIL HYDROCHLORIDE
     Indication: IMMUNOSUPPRESSION
     Dosage: 1250 MG, QD
     Route: 048
     Dates: start: 20110810
  4. LOCHOL [Concomitant]
     Active Substance: FLUVASTATIN SODIUM
     Indication: HYPERCHOLESTEROLAEMIA
     Dosage: 20 MG, QD
     Route: 048
     Dates: start: 20120525
  5. AZILVA [Concomitant]
     Active Substance: AZILSARTAN KAMEDOXOMIL
     Indication: HYPERTENSION
     Dosage: 20 MG, QD
     Route: 048
     Dates: start: 20170526, end: 20170929
  6. PLETAAL [Concomitant]
     Active Substance: CILOSTAZOL
     Indication: DEEP VEIN THROMBOSIS
     Dosage: 100 MG, BID
     Route: 048
     Dates: start: 20170219
  7. NEORAL [Suspect]
     Active Substance: CYCLOSPORINE
     Indication: RENAL TRANSPLANT
     Dosage: 75 MG, UNK (75 MG PER ADMINISTRATION)
     Route: 048
     Dates: start: 20120830, end: 20170827
  8. NEORAL [Suspect]
     Active Substance: CYCLOSPORINE
     Indication: DIABETIC NEPHROPATHY
  9. MEDROL [Suspect]
     Active Substance: METHYLPREDNISOLONE
     Indication: IMMUNOSUPPRESSION
     Dosage: 4 MG, QD
     Route: 048
     Dates: start: 20110816
  10. MAINTATE [Concomitant]
     Active Substance: BISOPROLOL FUMARATE
     Indication: HYPERTENSION
     Dosage: 5 MG, QD
     Route: 048
     Dates: start: 20110830
  11. NORVASC [Concomitant]
     Active Substance: AMLODIPINE BESYLATE
     Indication: HYPERTENSION
     Dosage: 2.5 MG, QD
     Route: 048
     Dates: start: 20170526, end: 20170714
  12. ARTIST [Concomitant]
     Active Substance: CARVEDILOL
     Indication: HYPERTENSION
     Dosage: 5 MG, QD
     Route: 048
     Dates: start: 20120609

REACTIONS (6)
  - Tumour rupture [Recovering/Resolving]
  - Abdominal pain [Recovering/Resolving]
  - Gastrointestinal stromal tumour [Recovering/Resolving]
  - Small intestinal perforation [Unknown]
  - Diarrhoea [Recovering/Resolving]
  - Acute abdomen [Recovering/Resolving]

NARRATIVE: CASE EVENT DATE: 201706
